FAERS Safety Report 10377725 (Version 4)
Quarter: 2015Q1

REPORT INFORMATION
  Report Type: Spontaneous
  Country: US (occurrence: US)
  Receive Date: 20140812
  Receipt Date: 20150210
  Transmission Date: 20150720
  Serious: Yes (Hospitalization, Other)
  Sender: FDA-Public Use
  Company Number: US-ASTRAZENECA-2013SE78699

PATIENT
  Age: 80 Year
  Sex: Female
  Weight: 44.5 kg

DRUGS (11)
  1. AMOX K CLAV [Concomitant]
     Indication: PNEUMONIA
     Route: 048
     Dates: start: 20131021
  2. MUCINEX [Concomitant]
     Active Substance: GUAIFENESIN
     Indication: INCREASED BRONCHIAL SECRETION
     Dosage: AS REQUIRED
     Dates: start: 20131007
  3. SYMBICORT [Suspect]
     Active Substance: BUDESONIDE\FORMOTEROL FUMARATE DIHYDRATE
     Indication: CHRONIC OBSTRUCTIVE PULMONARY DISEASE
     Dosage: 160/4.5 MCG, 2 PUFFS TWO TIMES A DAY
     Route: 055
     Dates: start: 20130923
  4. LEVOFLOXACIN. [Concomitant]
     Active Substance: LEVOFLOXACIN
     Indication: PNEUMONIA
     Route: 048
     Dates: start: 20130928, end: 20131020
  5. SPIRIVA [Concomitant]
     Active Substance: TIOTROPIUM BROMIDE MONOHYDRATE
     Dates: start: 2013
  6. LIPITOR [Concomitant]
     Active Substance: ATORVASTATIN CALCIUM
     Indication: BLOOD CHOLESTEROL INCREASED
     Route: 048
     Dates: start: 1996
  7. LORAZEPAM. [Concomitant]
     Active Substance: LORAZEPAM
     Indication: SLEEP DISORDER
     Route: 048
  8. LORAZEPAM. [Concomitant]
     Active Substance: LORAZEPAM
     Indication: RELAXATION THERAPY
     Route: 048
  9. FLOVENT [Concomitant]
     Active Substance: FLUTICASONE PROPIONATE
  10. TUDORZA PRESSAIR [Concomitant]
     Active Substance: ACLIDINIUM BROMIDE
     Indication: CHRONIC OBSTRUCTIVE PULMONARY DISEASE
     Dosage: 1 PUFF DAILY
     Route: 055
     Dates: start: 20130924
  11. ALBUTEROL. [Concomitant]
     Active Substance: ALBUTEROL
     Dosage: QID

REACTIONS (27)
  - Chest discomfort [Recovering/Resolving]
  - Respiratory tract infection fungal [Unknown]
  - Pain [Unknown]
  - Decreased appetite [Unknown]
  - Hunger [Unknown]
  - Pyrexia [Unknown]
  - Dizziness [Recovered/Resolved]
  - Lung neoplasm [Unknown]
  - Pulmonary mass [Unknown]
  - Pneumonia [Recovering/Resolving]
  - Dyspnoea [Unknown]
  - Vomiting [Unknown]
  - Thrombosis [Unknown]
  - Non-small cell lung cancer [Unknown]
  - Painful respiration [Recovering/Resolving]
  - Back pain [Recovering/Resolving]
  - Diarrhoea [Recovered/Resolved]
  - Weight decreased [Recovered/Resolved]
  - Retching [Unknown]
  - Pain [Recovering/Resolving]
  - Pneumonia [Unknown]
  - Pneumonia bacterial [Unknown]
  - Lung disorder [Unknown]
  - Hypophagia [Unknown]
  - Chest X-ray abnormal [Unknown]
  - Increased bronchial secretion [Not Recovered/Not Resolved]
  - Weight increased [Unknown]

NARRATIVE: CASE EVENT DATE: 2013
